FAERS Safety Report 9679195 (Version 2)
Quarter: 2013Q4

REPORT INFORMATION
  Report Type: Spontaneous
  Country: US (occurrence: US)
  Receive Date: 20131108
  Receipt Date: 20131108
  Transmission Date: 20140711
  Serious: Yes (Hospitalization)
  Sender: FDA-Public Use
  Company Number: US-B.I. PHARMACEUTICALS,INC./RIDGEFIELD-2013-BI-14229BP

PATIENT
  Age: 64 Year
  Sex: Male
  Weight: 82.55 kg

DRUGS (9)
  1. PRADAXA [Suspect]
     Indication: ANTICOAGULANT THERAPY
     Route: 048
     Dates: start: 20120829, end: 20121024
  2. PRADAXA [Suspect]
     Indication: ATRIAL FIBRILLATION
  3. ASPIRIN [Concomitant]
     Dosage: 325 MG
  4. DURAGESIC [Concomitant]
     Dosage: 25 MCG
  5. MS INSTANT RELEASE [Concomitant]
     Dosage: 200 MG
  6. IRON SUPPLEMENTS [Concomitant]
  7. LIPITOR [Concomitant]
     Dosage: 20 MG
  8. METOPROLOL [Concomitant]
     Dosage: 25 MG
  9. DIOVAN [Concomitant]
     Dosage: 80 MG

REACTIONS (2)
  - Cerebellar haemorrhage [Unknown]
  - Syncope [Recovered/Resolved]
